FAERS Safety Report 15261295 (Version 1)
Quarter: 2018Q3

REPORT INFORMATION
  Report Type: Spontaneous
  Country: US (occurrence: US)
  Receive Date: 20180719
  Receipt Date: 20180719
  Transmission Date: 20181010
  Serious: Yes (Hospitalization)
  Sender: FDA-Public Use
  Company Number: None

PATIENT
  Age: 53 Year
  Sex: Female

DRUGS (1)
  1. CAPECITABINE 500 MG WEST?WARD [Suspect]
     Active Substance: CAPECITABINE
     Indication: COLON CANCER
     Route: 048
     Dates: start: 20180509, end: 20180610

REACTIONS (3)
  - Diarrhoea [None]
  - Hypokalaemia [None]
  - Dehydration [None]

NARRATIVE: CASE EVENT DATE: 20180623
